FAERS Safety Report 9989557 (Version 1)
Quarter: 2013Q4

REPORT INFORMATION
  Report Type: Spontaneous
  Country: US (occurrence: None)
  Receive Date: 20131104
  Receipt Date: 20131104
  Transmission Date: 20140711
  Serious: Yes (Death, Hospitalization, Other)
  Sender: FDA-Public Use
  Company Number: ACO_22307_2010

PATIENT
  Age: 54 Year
  Sex: Female

DRUGS (14)
  1. AMPYRA [Suspect]
     Indication: GAIT DISTURBANCE
     Route: 048
     Dates: start: 20100406, end: 20100418
  2. BACLOFEN [Concomitant]
  3. AMITRIPTYLINE HCL [Concomitant]
  4. AMANTADINE [Concomitant]
  5. PRAVASTATIN [Concomitant]
  6. PRILOSEC [Concomitant]
  7. LISINOPRIL [Concomitant]
  8. ATENOLOL [Concomitant]
  9. HYDROCHLOROTHIAZIDE [Concomitant]
  10. EFFEXOR [Concomitant]
  11. ASPIRIN [Concomitant]
  12. CALCIUM [Concomitant]
  13. MULTIVITAMIN [Concomitant]
  14. ZOCOR [Concomitant]

REACTIONS (10)
  - Grand mal convulsion [None]
  - Multiple sclerosis [None]
  - Terminal state [None]
  - Renal haemorrhage [None]
  - Balance disorder [None]
  - Nausea [None]
  - Musculoskeletal stiffness [None]
  - Sluggishness [None]
  - Dysarthria [None]
  - Confusional state [None]
